FAERS Safety Report 5953132-0 (Version None)
Quarter: 2008Q4

REPORT INFORMATION
  Report Type: 
  Country: None (occurrence: None)
  Receive Date: 20081031
  Receipt Date: 20080820
  Transmission Date: 20090506
  Serious: Yes (Hospitalization)
  Sender: FDA-Public Use
  Company Number: US024435

PATIENT
  Sex: Female

DRUGS (3)
  1. PROVIGIL [Suspect]
     Dosage: BID ORAL
     Route: 048
  2. PROVIGIL [Suspect]
     Dosage: QD ORAL
     Route: 048
  3. OTHER MEDICATIONS [Concomitant]

REACTIONS (1)
  - SUICIDAL IDEATION [None]
